FAERS Safety Report 21295601 (Version 2)
Quarter: 2022Q3

REPORT INFORMATION
  Report Type: Spontaneous
  Country: JP (occurrence: JP)
  Receive Date: 20220906
  Receipt Date: 20220912
  Transmission Date: 20221027
  Serious: Yes (Hospitalization, Other)
  Sender: FDA-Public Use
  Company Number: JP-ASTELLAS-2022JP009921

PATIENT
  Age: 8 Decade
  Sex: Male

DRUGS (1)
  1. PADCEV [Suspect]
     Active Substance: ENFORTUMAB VEDOTIN-EJFV
     Indication: Transitional cell carcinoma
     Dosage: 1.25 MG/KG, ONCE WEEKLY ADMINISTRATION FOR THREE CONSECUTIVE WEEKS AND INTERRUPTION FOR THE 4TH WEEK
     Route: 041
     Dates: start: 20220607

REACTIONS (3)
  - White blood cell count decreased [Unknown]
  - Taste disorder [Not Recovered/Not Resolved]
  - Pyelonephritis [Recovering/Resolving]
